FAERS Safety Report 8528584-2 (Version None)
Quarter: 2012Q3

REPORT INFORMATION
  Report Type: 
  Country: None (occurrence: None)
  Receive Date: 20120716
  Receipt Date: 20120716
  Transmission Date: 20120928
  Serious: Yes (Other)
  Sender: FDA-Public Use
  Company Number: None

PATIENT
  Sex: Female
  Weight: 62.1428 kg

DRUGS (1)
  1. NITROFURANTOIN (MONOHYDRATE/MACROCRYSTALS) [Suspect]
     Indication: URINARY TRACT INFECTION
     Dosage: 100 MG CAP 1 CAP 2X DAILY PO 1 DOSE
     Route: 048
     Dates: start: 20120711, end: 20120711

REACTIONS (2)
  - MYALGIA [None]
  - ASTHENIA [None]
